FAERS Safety Report 7774663-7 (Version None)
Quarter: 2011Q3

REPORT INFORMATION
  Report Type: 
  Country: None (occurrence: None)
  Receive Date: 20110923
  Receipt Date: 20110921
  Transmission Date: 20111222
  Serious: Yes (Hospitalization)
  Sender: FDA-Public Use
  Company Number: GB-ROCHE-803867

PATIENT
  Sex: Female
  Weight: 63.2 kg

DRUGS (1)
  1. NAPROXEN [Suspect]
     Route: 048
     Dates: end: 20110823

REACTIONS (2)
  - HAEMOGLOBIN DECREASED [None]
  - GASTROINTESTINAL HAEMORRHAGE [None]
